FAERS Safety Report 10373153 (Version 1)
Quarter: 2014Q3

REPORT INFORMATION
  Report Type: Spontaneous
  Country: PR (occurrence: PR)
  Receive Date: 20140808
  Receipt Date: 20140808
  Transmission Date: 20150326
  Serious: No
  Sender: FDA-Public Use
  Company Number: PR-BAXTER-2014BAX042025

PATIENT
  Sex: Male

DRUGS (10)
  1. STERILE WATER [Suspect]
     Active Substance: WATER
     Indication: PARENTERAL NUTRITION
     Route: 042
     Dates: end: 20140616
  2. POTASSIUM PHOSPHATE [Suspect]
     Active Substance: POTASSIUM PHOSPHATE
     Indication: PARENTERAL NUTRITION
     Route: 042
     Dates: end: 20140616
  3. MAGNESIUM PHOSPHATE [Suspect]
     Active Substance: MAGNESIUM PHOSPHATE, TRIBASIC, PENTAHYDRATE
     Indication: PARENTERAL NUTRITION
     Route: 042
     Dates: end: 20140616
  4. MULTI VITAMIN INFUSION PEDIATRIC [Suspect]
     Active Substance: .ALPHA.-TOCOPHEROL ACETATE\ASCORBIC ACID\BIOTIN\CYANOCOBALAMIN\DEXPANTHENOL\ERGOCALCIFEROL\FOLIC ACID\NIACINAMIDE\PHYTONADIONE\PYRIDOXINE HYDROCHLORIDE\RETINOL\RIBOFLAVIN 5^-PHOSPHATE SODIUM\THIAMINE HYDROCHLORIDE
     Indication: PARENTERAL NUTRITION
     Route: 042
     Dates: end: 20140616
  5. 70% DEXTROSE INJECTION USP [Suspect]
     Active Substance: DEXTROSE
     Indication: PARENTERAL NUTRITION
     Route: 042
     Dates: end: 20140616
  6. 5% SODIUM CHLORIDE INJECTION [Suspect]
     Active Substance: SODIUM CHLORIDE
     Indication: PARENTERAL NUTRITION
     Route: 042
     Dates: end: 20140616
  7. POTASSIUM CHLORIDE 0.4MEQ/ML [Suspect]
     Active Substance: POTASSIUM CHLORIDE
     Indication: PARENTERAL NUTRITION
     Route: 042
     Dates: end: 20140616
  8. SODIUM ACETATE. [Suspect]
     Active Substance: SODIUM ACETATE
     Indication: PARENTERAL NUTRITION
     Route: 042
     Dates: end: 20140616
  9. 10% PREMASOL [Suspect]
     Active Substance: AMINO ACIDS
     Indication: PARENTERAL NUTRITION
     Route: 042
     Dates: end: 20140616
  10. CALCIUM GLUCONATE. [Suspect]
     Active Substance: CALCIUM GLUCONATE
     Indication: PARENTERAL NUTRITION
     Route: 042
     Dates: end: 20140616

REACTIONS (2)
  - Expired product administered [Recovered/Resolved]
  - No adverse event [Recovered/Resolved]

NARRATIVE: CASE EVENT DATE: 20140616
